FAERS Safety Report 18586225 (Version 3)
Quarter: 2023Q1

REPORT INFORMATION
  Report Type: Spontaneous
  Country: US (occurrence: US)
  Receive Date: 20201207
  Receipt Date: 20230130
  Transmission Date: 20230417
  Serious: No
  Sender: FDA-Public Use
  Company Number: US-PFIZER INC-2020477955

PATIENT
  Age: 81 Year
  Sex: Male

DRUGS (1)
  1. VYNDAMAX [Suspect]
     Active Substance: TAFAMIDIS
     Indication: Amyloidosis
     Dosage: 61 MG

REACTIONS (5)
  - Dyspnoea [Unknown]
  - Dizziness [Unknown]
  - Oedema peripheral [Unknown]
  - Illness [Unknown]
  - Off label use [Unknown]
